FAERS Safety Report 9169984 (Version 1)
Quarter: 2013Q1

REPORT INFORMATION
  Report Type: Spontaneous
  Country: US (occurrence: None)
  Receive Date: 20130314
  Receipt Date: 20130314
  Transmission Date: 20140127
  Serious: Yes (Hospitalization)
  Sender: FDA-Public Use
  Company Number: None

PATIENT
  Age: 79 Year
  Sex: Male
  Weight: 95 kg

DRUGS (15)
  1. HYDROMORPHONE [Suspect]
     Indication: PAIN
     Route: 039
     Dates: start: 20120518, end: 20120521
  2. BUPIVICAINE [Suspect]
     Indication: PAIN
     Route: 038
     Dates: start: 20120418, end: 20120521
  3. ASCORBIC ACID [Concomitant]
  4. OXYCODONE/ACETAMINOPHEN [Concomitant]
  5. ALLOPURINOL [Concomitant]
  6. ALPRAZOLAM [Concomitant]
  7. AMLODIPINE [Concomitant]
  8. CARVEDILOL [Concomitant]
  9. FUROSEMIDE [Concomitant]
  10. GEMFIBROZIL [Concomitant]
  11. INSULIN ASPART [Concomitant]
  12. INSULIN GLARGINE [Concomitant]
  13. LACTOBACILLUS [Concomitant]
  14. LISINOPRIL [Concomitant]
  15. SENNA [Concomitant]

REACTIONS (5)
  - Abdominal pain [None]
  - Nausea [None]
  - Vomiting [None]
  - Confusional state [None]
  - Lethargy [None]
